FAERS Safety Report 13999426 (Version 2)
Quarter: 2021Q1

REPORT INFORMATION
  Report Type: Spontaneous
  Country: US (occurrence: US)
  Receive Date: 20170922
  Receipt Date: 20210104
  Transmission Date: 20210419
  Serious: Yes (Other)
  Sender: FDA-Public Use
  Company Number: US-ASTRAZENECA-2017SE96412

PATIENT
  Age: 840 Month
  Sex: Male
  Weight: 57.6 kg

DRUGS (10)
  1. SEREVENT DISKUS INHALER [Concomitant]
     Indication: DYSPNOEA
     Route: 055
  2. DALIRESP [Suspect]
     Active Substance: ROFLUMILAST
     Indication: CHRONIC OBSTRUCTIVE PULMONARY DISEASE
     Route: 048
     Dates: start: 201709
  3. PREDNISONE. [Concomitant]
     Active Substance: PREDNISONE
     Indication: DYSPNOEA
     Route: 048
  4. ASMANEX TWIST?HALER INHALER [Concomitant]
     Indication: DYSPNOEA
     Route: 055
  5. IPRATROPIUM BROMIDE VIA NEBULIZER [Concomitant]
     Indication: DYSPNOEA
     Dosage: TWO TIMES A DAY
     Route: 055
  6. SODIUM CHLORIDE VIA NEBULIZER [Concomitant]
     Indication: DYSPNOEA
     Dosage: TWO TIMES A DAY
     Route: 055
  7. ALBUTEROL VIA NEBULIZER [Concomitant]
     Indication: DYSPNOEA
     Dosage: TWO TIMES A DAY
     Route: 055
  8. TOBI POD?HALER / TOBRAMYCIN [Concomitant]
     Indication: DYSPNOEA
     Dosage: 28MG TWICE DAILY FOR TWENTY?EIGHT CONSECUTIVE DAYS ON AND THEN TWENTY?EIGHT CONSECUTIVE DAYS OFF ...
     Route: 055
  9. VENTOLIN / ALBUTEROL INHALER [Concomitant]
     Indication: DYSPNOEA
     Route: 055
  10. SPIRIVA [Concomitant]
     Active Substance: TIOTROPIUM BROMIDE MONOHYDRATE
     Indication: DYSPNOEA
     Route: 055

REACTIONS (8)
  - Product label issue [Not Recovered/Not Resolved]
  - Cronobacter infection [Not Recovered/Not Resolved]
  - Drug ineffective [Not Recovered/Not Resolved]
  - Pneumonia bacterial [Not Recovered/Not Resolved]
  - Bronchitis [Not Recovered/Not Resolved]
  - Sleep disorder [Not Recovered/Not Resolved]
  - Dyspnoea [Not Recovered/Not Resolved]
  - Pneumonia pseudomonal [Not Recovered/Not Resolved]

NARRATIVE: CASE EVENT DATE: 201709
